FAERS Safety Report 7134896-X (Version None)
Quarter: 2010Q4

REPORT INFORMATION
  Report Type: 
  Country: None (occurrence: None)
  Receive Date: 20101203
  Receipt Date: 20101129
  Transmission Date: 20110411
  Serious: Yes (Hospitalization)
  Sender: FDA-Public Use
  Company Number: JP-BRACCO-004293

PATIENT
  Age: 74 Year
  Sex: Male
  Weight: 67 kg

DRUGS (2)
  1. PROHANCE [Suspect]
     Indication: DIAGNOSTIC PROCEDURE
     Route: 040
     Dates: start: 20101102, end: 20101102
  2. PROHANCE [Suspect]
     Indication: PROSTATE CANCER
     Route: 040
     Dates: start: 20101102, end: 20101102

REACTIONS (1)
  - ANAPHYLACTOID SHOCK [None]
